FAERS Safety Report 18478764 (Version 2)
Quarter: 2021Q1

REPORT INFORMATION
  Report Type: Spontaneous
  Country: US (occurrence: US)
  Receive Date: 20201109
  Receipt Date: 20210308
  Transmission Date: 20210419
  Serious: Yes (Hospitalization, Other)
  Sender: FDA-Public Use
  Company Number: US-CIPLA LTD.-2020US07825

PATIENT

DRUGS (12)
  1. DEXAMETHASONE. [Concomitant]
     Active Substance: DEXAMETHASONE
     Indication: PROPHYLAXIS
     Dosage: 10 MG
     Route: 065
  2. BEVACIZUMAB. [Concomitant]
     Active Substance: BEVACIZUMAB
     Indication: COLON CANCER METASTATIC
     Dosage: UNK
     Route: 065
  3. OXALIPLATIN. [Suspect]
     Active Substance: OXALIPLATIN
     Dosage: UNK, 2 CYCLICAL 12 CYCLES OF ADJUVANT FOLFOX?REDUCED
     Route: 065
  4. 5?FLUOROURACIL [FLUOROURACIL] [Suspect]
     Active Substance: FLUOROURACIL
     Indication: COLON CANCER METASTATIC
  5. OXALIPLATIN. [Suspect]
     Active Substance: OXALIPLATIN
     Indication: COLON CANCER METASTATIC
     Dosage: UNK, 5 CYCLES OF ADJUVANT FOLFOX?REDUCED
     Route: 065
  6. OXALIPLATIN. [Suspect]
     Active Substance: OXALIPLATIN
     Dosage: 55 MILLIGRAM/SQ. METER, 4 CYCLICAL
     Route: 065
  7. OXALIPLATIN. [Suspect]
     Active Substance: OXALIPLATIN
     Dosage: UNK, 1 CYCLICAL, REDUCED DOSE/ CYCLE 8
     Route: 065
  8. OXALIPLATIN. [Suspect]
     Active Substance: OXALIPLATIN
     Dosage: 65 MILLIGRAM/SQ. METER, 3 CYCLICAL
     Route: 065
  9. LEUCOVORIN [FOLINIC ACID] [Suspect]
     Active Substance: LEUCOVORIN
     Indication: COLON CANCER STAGE III
     Dosage: UNK
     Route: 065
  10. LEUCOVORIN [FOLINIC ACID] [Suspect]
     Active Substance: LEUCOVORIN
     Indication: COLON CANCER METASTATIC
  11. OXALIPLATIN. [Suspect]
     Active Substance: OXALIPLATIN
     Indication: COLON CANCER STAGE III
     Dosage: UNK, 5 CYCLICAL, 12 CYCLES OF ADJUVANT FOLFOX
     Route: 065
  12. 5?FLUOROURACIL [FLUOROURACIL] [Suspect]
     Active Substance: FLUOROURACIL
     Indication: COLON CANCER STAGE III
     Dosage: UNK
     Route: 065

REACTIONS (7)
  - Immune thrombocytopenia [Recovered/Resolved]
  - Diarrhoea [Unknown]
  - Type II hypersensitivity [Recovered/Resolved]
  - Neutropenia [Recovered/Resolved]
  - Pneumonia [Unknown]
  - Epistaxis [Unknown]
  - Petechiae [Unknown]
